FAERS Safety Report 20344882 (Version 1)
Quarter: 2022Q1

REPORT INFORMATION
  Report Type: Other
  Country: CA (occurrence: CA)
  Receive Date: 20220118
  Receipt Date: 20220118
  Transmission Date: 20220423
  Serious: Yes (Hospitalization, Other)
  Sender: FDA-Public Use
  Company Number: CA-GLENMARK PHARMACEUTICALS-2022GMK069803

PATIENT

DRUGS (25)
  1. EZETIMIBE [Suspect]
     Active Substance: EZETIMIBE
     Indication: Low density lipoprotein
     Dosage: UNK
     Route: 065
  2. EZETIMIBE [Suspect]
     Active Substance: EZETIMIBE
     Dosage: UNK
     Route: 065
  3. DOCONEXENT\ICOSAPENT ETHYL [Suspect]
     Active Substance: DOCONEXENT\ICOSAPENT ETHYL
     Indication: Low density lipoprotein
     Dosage: UNK
     Route: 065
  4. DOCONEXENT\ICOSAPENT ETHYL [Suspect]
     Active Substance: DOCONEXENT\ICOSAPENT ETHYL
     Dosage: UNK
     Route: 065
  5. FLUVASTATIN SODIUM [Suspect]
     Active Substance: FLUVASTATIN SODIUM
     Indication: Low density lipoprotein
     Dosage: UNK
     Route: 065
  6. FLUVASTATIN SODIUM [Suspect]
     Active Substance: FLUVASTATIN SODIUM
     Dosage: UNK
     Route: 065
  7. LIPITOR [Suspect]
     Active Substance: ATORVASTATIN CALCIUM
     Indication: Low density lipoprotein
     Dosage: UNK
     Route: 065
  8. LIPITOR [Suspect]
     Active Substance: ATORVASTATIN CALCIUM
     Dosage: UNK
     Route: 065
  9. COLESEVELAM HYDROCHLORIDE [Suspect]
     Active Substance: COLESEVELAM HYDROCHLORIDE
     Indication: Low density lipoprotein
     Dosage: UNK
     Route: 065
  10. LOMITAPIDE MESYLATE [Suspect]
     Active Substance: LOMITAPIDE MESYLATE
     Indication: Low density lipoprotein
     Dosage: UNK
     Route: 065
  11. LOMITAPIDE MESYLATE [Suspect]
     Active Substance: LOMITAPIDE MESYLATE
     Dosage: UNK
     Route: 065
  12. MEVACOR [Suspect]
     Active Substance: LOVASTATIN
     Indication: Low density lipoprotein
     Dosage: UNK
     Route: 065
  13. MEVACOR [Suspect]
     Active Substance: LOVASTATIN
     Dosage: UNK
     Route: 065
  14. NIACIN [Suspect]
     Active Substance: NIACIN
     Indication: Low density lipoprotein
     Dosage: UNK
     Route: 065
  15. NIACIN [Suspect]
     Active Substance: NIACIN
     Dosage: UNK
     Route: 065
  16. CHOLESTYRAMINE [Suspect]
     Active Substance: CHOLESTYRAMINE
     Indication: Low density lipoprotein
     Dosage: UNK
     Route: 065
  17. PRALUENT [Suspect]
     Active Substance: ALIROCUMAB
     Indication: Low density lipoprotein
     Dosage: UNK
     Route: 065
  18. PRALUENT [Suspect]
     Active Substance: ALIROCUMAB
     Indication: Low density lipoprotein
     Dosage: UNK
     Route: 058
  19. PRAVASTATIN SODIUM [Suspect]
     Active Substance: PRAVASTATIN SODIUM
     Indication: Low density lipoprotein
     Dosage: UNK
     Route: 065
  20. PRAVASTATIN SODIUM [Suspect]
     Active Substance: PRAVASTATIN SODIUM
     Indication: Low density lipoprotein
     Dosage: UNK
     Route: 065
  21. REPATHA [Suspect]
     Active Substance: EVOLOCUMAB
     Indication: Low density lipoprotein
     Dosage: UNK
     Route: 058
  22. ROSUVASTATIN CALCIUM [Suspect]
     Active Substance: ROSUVASTATIN CALCIUM
     Indication: Low density lipoprotein
     Dosage: UNK
     Route: 065
  23. ZOCOR [Suspect]
     Active Substance: SIMVASTATIN
     Indication: Low density lipoprotein
     Dosage: UNK
     Route: 065
  24. COLESEVELAM HYDROCHLORIDE [Suspect]
     Active Substance: COLESEVELAM HYDROCHLORIDE
     Indication: Low density lipoprotein
     Dosage: UNK
     Route: 048
  25. CHOLESTYRAMINE [Suspect]
     Active Substance: CHOLESTYRAMINE
     Indication: Low density lipoprotein
     Dosage: UNK
     Route: 048

REACTIONS (3)
  - Cerebrovascular accident [Unknown]
  - Myocardial infarction [Unknown]
  - Drug ineffective [Unknown]
